FAERS Safety Report 25922818 (Version 1)
Quarter: 2025Q4

REPORT INFORMATION
  Report Type: Report from Study
  Country: US (occurrence: US)
  Receive Date: 20251015
  Receipt Date: 20251015
  Transmission Date: 20260118
  Serious: Yes (Other)
  Sender: TEVA
  Company Number: US-TEVA-VS-3378941

PATIENT
  Age: 60 Year
  Sex: Female

DRUGS (1)
  1. AUSTEDO XR [Suspect]
     Active Substance: DEUTETRABENAZINE
     Indication: Anxiety disorder
     Route: 048

REACTIONS (2)
  - Back pain [Not Recovered/Not Resolved]
  - Product use in unapproved indication [Unknown]
